FAERS Safety Report 4455724-7 (Version None)
Quarter: 2004Q3

REPORT INFORMATION
  Report Type: 
  Country: None (occurrence: None)
  Receive Date: 20040922
  Receipt Date: 20040505
  Transmission Date: 20050211
  Serious: Yes (Other)
  Sender: FDA-Public Use
  Company Number: US-BRISTOL-MYERS SQUIBB COMPANY-12580189

PATIENT
  Sex: Female

DRUGS (1)
  1. TAXOL [Suspect]

REACTIONS (2)
  - DERMATOMYOSITIS [None]
  - INFUSION RELATED REACTION [None]
